FAERS Safety Report 4618522-7 (Version None)
Quarter: 2005Q1

REPORT INFORMATION
  Report Type: 
  Country: None (occurrence: None)
  Receive Date: 20050323
  Receipt Date: 20050310
  Transmission Date: 20050727
  Serious: Yes (Hospitalization, Other)
  Sender: FDA-Public Use
  Company Number: 20050300060

PATIENT
  Age: 81 Year
  Sex: Female

DRUGS (2)
  1. DESFLURANE [Suspect]
     Indication: ANAESTHESIA
  2. ATENOLOL [Concomitant]

REACTIONS (8)
  - ANAESTHETIC COMPLICATION [None]
  - CHOLELITHIASIS [None]
  - COAGULOPATHY [None]
  - CONFUSIONAL STATE [None]
  - DRUG TOXICITY [None]
  - HEPATIC ENCEPHALOPATHY [None]
  - HEPATIC FAILURE [None]
  - HEPATOTOXICITY [None]
